FAERS Safety Report 6341480-4 (Version None)
Quarter: 2009Q3

REPORT INFORMATION
  Report Type: 
  Country: None (occurrence: None)
  Receive Date: 20090904
  Receipt Date: 20090824
  Transmission Date: 20100115
  Serious: Yes (Other)
  Sender: FDA-Public Use
  Company Number: AU-PFIZER INC-2009249060

PATIENT
  Age: 44 Year

DRUGS (5)
  1. CHAMPIX [Suspect]
     Indication: SMOKING CESSATION THERAPY
     Dosage: 1 MG, 2X/DAY
     Route: 048
  2. LOVAN [Concomitant]
     Indication: DEPRESSION
     Dosage: 4 TABLETS IN THE MORNING
     Route: 048
  3. METOPROLOL TARTRATE [Concomitant]
  4. ACETAMINOPHEN W/ CODEINE [Concomitant]
  5. VALIUM [Concomitant]
     Indication: ANXIETY
     Dosage: 1-2 TABLETS WHEN REQUIRED
     Route: 048

REACTIONS (5)
  - ANXIETY [None]
  - BRUXISM [None]
  - DIZZINESS [None]
  - INSOMNIA [None]
  - MIGRAINE [None]
